FAERS Safety Report 7690238-2 (Version None)
Quarter: 2011Q3

REPORT INFORMATION
  Report Type: 
  Country: None (occurrence: None)
  Receive Date: 20110818
  Receipt Date: 20110816
  Transmission Date: 20111222
  Serious: Yes (Other)
  Sender: FDA-Public Use
  Company Number: US-PFIZER INC-2011188726

PATIENT
  Sex: Female

DRUGS (3)
  1. LYRICA [Interacting]
     Indication: NEURALGIA
  2. LYRICA [Suspect]
     Indication: PAIN
     Dosage: 75MG, UNK
     Dates: start: 20080101, end: 20110816
  3. NAPROXEN [Interacting]
     Dosage: UNK
     Dates: end: 20110816

REACTIONS (6)
  - FEAR [None]
  - SLEEP DISORDER [None]
  - LOSS OF CONSCIOUSNESS [None]
  - FEELING ABNORMAL [None]
  - DRUG INTERACTION [None]
  - MALAISE [None]
